FAERS Safety Report 24425720 (Version 1)
Quarter: 2024Q4

REPORT INFORMATION
  Report Type: Spontaneous
  Country: SE (occurrence: SE)
  Receive Date: 20241011
  Receipt Date: 20241011
  Transmission Date: 20250115
  Serious: Yes (Other)
  Sender: ACCORD
  Company Number: None

PATIENT
  Age: 21 Year
  Sex: Female
  Weight: 105 kg

DRUGS (8)
  1. SOLIFENACIN SUCCINATE [Suspect]
     Active Substance: SOLIFENACIN SUCCINATE
     Indication: Hypertonic bladder
     Dosage: 1X1
     Dates: start: 20240824, end: 20240912
  2. ESCITALOPRAM [Concomitant]
     Active Substance: ESCITALOPRAM OXALATE
     Dosage: 1X1TV
     Dates: start: 20220101
  3. DESLORATADINE [Concomitant]
     Active Substance: DESLORATADINE
     Dosage: 1X1
     Dates: start: 20220101
  4. CREON [Concomitant]
     Active Substance: PANCRELIPASE AMYLASE\PANCRELIPASE LIPASE\PANCRELIPASE PROTEASE
     Dosage: 2X3TV
     Dates: start: 20220101
  5. ACETAMINOPHEN [Concomitant]
     Active Substance: ACETAMINOPHEN
     Dosage: 1VB MAX 4/D
     Dates: start: 20220101
  6. PROMETHAZINE HYDROCHLORIDE\THIOUREA [Concomitant]
     Active Substance: PROMETHAZINE HYDROCHLORIDE\THIOUREA
     Dosage: 1+0+1+0
     Dates: start: 20210101
  7. AMITRIPTYLINE [Concomitant]
     Active Substance: AMITRIPTYLINE
     Dosage: 2TN
     Dates: start: 20220101
  8. IBUPROFEN [Concomitant]
     Active Substance: IBUPROFEN
     Dosage: 1 VB MAX 3 /D
     Dates: start: 20230801

REACTIONS (2)
  - Loss of personal independence in daily activities [Recovered/Resolved]
  - Muscle contracture [Recovered/Resolved]

NARRATIVE: CASE EVENT DATE: 20240908
